FAERS Safety Report 14955910 (Version 10)
Quarter: 2022Q3

REPORT INFORMATION
  Report Type: Report from Study
  Country: US (occurrence: None)
  Receive Date: 20180531
  Receipt Date: 20220811
  Transmission Date: 20221027
  Serious: Yes (Hospitalization, Other)
  Sender: FDA-Public Use
  Company Number: US-ROCHE-2129930

PATIENT
  Age: 54 Year
  Sex: Female
  Weight: 130.8 kg

DRUGS (29)
  1. COBIMETINIB [Suspect]
     Active Substance: COBIMETINIB
     Indication: Erdheim-Chester disease
     Dosage: LAST DOSE OF COBIMETINIB ON 23/OCT/2018
     Route: 048
     Dates: start: 20161209
  2. COBIMETINIB [Suspect]
     Active Substance: COBIMETINIB
     Route: 048
     Dates: start: 20180808
  3. COBIMETINIB [Suspect]
     Active Substance: COBIMETINIB
     Route: 048
  4. DDAVP [Concomitant]
     Active Substance: DESMOPRESSIN ACETATE
     Route: 045
  5. FLUOCINONIDE [Concomitant]
     Active Substance: FLUOCINONIDE
     Route: 061
  6. SILVER SULFADIAZINE [Concomitant]
     Active Substance: SILVER SULFADIAZINE
     Route: 061
  7. SILVER SULFADIAZINE [Concomitant]
     Active Substance: SILVER SULFADIAZINE
     Route: 061
  8. TRIAMCINOLONE [Concomitant]
     Active Substance: TRIAMCINOLONE
     Route: 061
  9. HYDROCORTISONE [Concomitant]
     Active Substance: HYDROCORTISONE
     Dosage: TAKE 2 TABLETS (10 MG) ONE IN AM AND ONE IN PM, MAY TAKE AN ADDITIONAL 5-10 MG AS REQUIRED
  10. LEVOTHYROXINE [Concomitant]
     Active Substance: LEVOTHYROXINE
     Route: 048
  11. CEFADROXIL [Concomitant]
     Active Substance: CEFADROXIL
     Dosage: FOR 10 DAYS
     Route: 048
  12. PENLAC NAIL [Concomitant]
     Dosage: FOR 90 DAYS
     Route: 061
  13. PANTOPRAZOLE [Concomitant]
     Active Substance: PANTOPRAZOLE
     Dosage: DELAYED RELEASE
     Route: 048
  14. SOLU-CORTEF [Concomitant]
     Active Substance: HYDROCORTISONE SODIUM SUCCINATE
  15. ACETAMINOPHEN [Concomitant]
     Active Substance: ACETAMINOPHEN
  16. THIAMINE [Concomitant]
     Active Substance: THIAMINE
  17. IMODIUM [Concomitant]
     Active Substance: LOPERAMIDE HYDROCHLORIDE
  18. FERROUS SULFATE [Concomitant]
     Active Substance: FERROUS SULFATE
     Route: 048
  19. LEVETIRACETAM [Concomitant]
     Active Substance: LEVETIRACETAM
  20. PREGABALIN [Concomitant]
     Active Substance: PREGABALIN
  21. CLOTRIMAZOLE [Concomitant]
     Active Substance: CLOTRIMAZOLE
     Route: 061
  22. ACLOVATE [Concomitant]
     Active Substance: ALCLOMETASONE DIPROPIONATE
     Route: 061
  23. MUPIROCIN [Concomitant]
     Active Substance: MUPIROCIN
     Route: 061
  24. LEVETIRACETAM [Concomitant]
     Active Substance: LEVETIRACETAM
  25. AMMONIUM LACTATE [Concomitant]
     Active Substance: AMMONIUM LACTATE
     Route: 061
  26. LOPERAMIDE [Concomitant]
     Active Substance: LOPERAMIDE
     Route: 048
  27. CYANOCOBALAMIN [Concomitant]
     Active Substance: CYANOCOBALAMIN
     Dosage: INJECTABLE SOLUTION ONCE IN AWEEKS ONLY ON TUESDAY
  28. CAMPHOR;MENTHOL [Concomitant]
     Route: 061
  29. DESMOPRESSIN [Concomitant]
     Active Substance: DESMOPRESSIN
     Dosage: NASAL SPRAY: 1 PUFF IN EACH NOSTRILS

REACTIONS (25)
  - Confusional state [Unknown]
  - Asthenia [Unknown]
  - Azotaemia [Unknown]
  - Acute kidney injury [Unknown]
  - Dehydration [Unknown]
  - Somnolence [Unknown]
  - Metabolic acidosis [Unknown]
  - Drug reaction with eosinophilia and systemic symptoms [Unknown]
  - Nephropathy toxic [Unknown]
  - Urinary tract infection [Unknown]
  - Dyspnoea [Unknown]
  - Blood lactic acid increased [Unknown]
  - Hypernatraemia [Recovering/Resolving]
  - Blood thyroid stimulating hormone decreased [Unknown]
  - Dysarthria [Unknown]
  - Dysphagia [Unknown]
  - Feeling cold [Unknown]
  - Pollakiuria [Unknown]
  - Hypoxia [Unknown]
  - Respiratory failure [Unknown]
  - Pneumonia [Unknown]
  - Anaemia [Unknown]
  - Epigastric discomfort [Unknown]
  - Cognitive disorder [Unknown]
  - Immune system disorder [Unknown]

NARRATIVE: CASE EVENT DATE: 20180523
